FAERS Safety Report 7555958-9 (Version None)
Quarter: 2011Q2

REPORT INFORMATION
  Report Type: 
  Country: None (occurrence: None)
  Receive Date: 20110619
  Receipt Date: 20101007
  Transmission Date: 20111010
  Serious: No
  Sender: FDA-Public Use
  Company Number: US-ALLERGAN-1012915US

PATIENT
  Sex: Male

DRUGS (1)
  1. SANCTURA [Suspect]
     Indication: POLLAKIURIA
     Dosage: 60 MG, QD
     Route: 048
     Dates: start: 20100901

REACTIONS (1)
  - DRUG INEFFECTIVE [None]
